FAERS Safety Report 12888548 (Version 2)
Quarter: 2016Q4

REPORT INFORMATION
  Report Type: Spontaneous
  Country: US (occurrence: US)
  Receive Date: 20161027
  Receipt Date: 20161114
  Transmission Date: 20170207
  Serious: No
  Sender: FDA-Public Use
  Company Number: US-PFIZER INC-2016496416

PATIENT
  Age: 55 Year
  Sex: Female

DRUGS (4)
  1. CHANTIX [Suspect]
     Active Substance: VARENICLINE TARTRATE
     Indication: SMOKING CESSATION THERAPY
     Dosage: UNK
  2. AMBIEN [Concomitant]
     Active Substance: ZOLPIDEM TARTRATE
     Dosage: UNK, AS NEEDED
  3. NEURONTIN [Concomitant]
     Active Substance: GABAPENTIN
     Dosage: 30 MG, 3X/DAY
  4. HYDROCODONE [Concomitant]
     Active Substance: HYDROCODONE
     Dosage: UNK, AS NEEDED

REACTIONS (5)
  - Anxiety [Recovered/Resolved]
  - Feeling abnormal [Unknown]
  - Tachyphrenia [Unknown]
  - Tremor [Unknown]
  - Crying [Recovered/Resolved]
